FAERS Safety Report 4806353-4 (Version None)
Quarter: 2005Q4

REPORT INFORMATION
  Report Type: 
  Country: None (occurrence: None)
  Receive Date: 20051021
  Receipt Date: 20051007
  Transmission Date: 20060501
  Serious: Yes (Hospitalization)
  Sender: FDA-Public Use
  Company Number: US-ROCHE-420523

PATIENT
  Age: 51 Year
  Sex: Female

DRUGS (3)
  1. BONIVA [Suspect]
     Indication: OSTEOPENIA
     Dosage: 150MG RECEIVED EVERY MONTH.
     Route: 048
     Dates: start: 20050815, end: 20051003
  2. NEXIUM [Concomitant]
     Dosage: 40MG RECEIVED EVERY MONTH.
     Route: 048
  3. LEVOXYL [Concomitant]
     Indication: THYROID GLAND CANCER
     Route: 048

REACTIONS (1)
  - CHEST PAIN [None]
